FAERS Safety Report 10080360 (Version 1)
Quarter: 2014Q2

REPORT INFORMATION
  Report Type: Report from Study
  Country: US (occurrence: US)
  Receive Date: 20140415
  Receipt Date: 20140415
  Transmission Date: 20141212
  Serious: Yes (Other)
  Sender: FDA-Public Use
  Company Number: US-ABBVIE-14P-163-1222301-00

PATIENT
  Age: 53 Year
  Sex: Female
  Weight: 72.64 kg

DRUGS (5)
  1. HUMIRA [Suspect]
     Indication: RHEUMATOID ARTHRITIS
     Dates: start: 201402, end: 201402
  2. NUCYNTA [Concomitant]
     Indication: PAIN
  3. XANAX [Concomitant]
     Indication: ANXIETY
  4. LISINOPRIL [Concomitant]
     Indication: HYPERTENSION
  5. PROPANOL [Concomitant]
     Indication: HEART RATE INCREASED

REACTIONS (7)
  - Tooth fracture [Recovered/Resolved]
  - Corneal abrasion [Recovered/Resolved]
  - Sinusitis [Recovered/Resolved]
  - Fall [Recovered/Resolved]
  - Lumbar vertebral fracture [Recovering/Resolving]
  - Coccydynia [Not Recovered/Not Resolved]
  - Head injury [Recovered/Resolved]
